FAERS Safety Report 9932933 (Version 1)
Quarter: 2014Q1

REPORT INFORMATION
  Report Type: Spontaneous
  Country: US (occurrence: US)
  Receive Date: 20140228
  Receipt Date: 20140228
  Transmission Date: 20141002
  Serious: No
  Sender: FDA-Public Use
  Company Number: US-GLAXOSMITHKLINE-A1040143A

PATIENT
  Age: 2 Year
  Sex: 0

DRUGS (2)
  1. LAMICTAL [Suspect]
     Indication: PRODUCT USED FOR UNKNOWN INDICATION
     Dates: start: 20130729
  2. SABRIL [Suspect]
     Dosage: 500MG UNKNOWN
     Route: 048
     Dates: start: 20120806

REACTIONS (2)
  - Rash [Unknown]
  - Urticaria [Unknown]
